FAERS Safety Report 10972639 (Version 7)
Quarter: 2022Q3

REPORT INFORMATION
  Report Type: Spontaneous
  Country: US (occurrence: US)
  Receive Date: 20150331
  Receipt Date: 20220923
  Transmission Date: 20221026
  Serious: Yes (Other)
  Sender: FDA-Public Use
  Company Number: US-JNJFOC-20131210500

PATIENT
  Age: 10 Year
  Sex: Male

DRUGS (9)
  1. RISPERDAL [Suspect]
     Active Substance: RISPERIDONE
     Indication: Aggression
     Dosage: 0.5 MG EVERY 12 HOURS
     Route: 048
     Dates: start: 20100409
  2. RISPERDAL [Suspect]
     Active Substance: RISPERIDONE
     Indication: Agitation
     Route: 048
     Dates: start: 2011, end: 2013
  3. RISPERDAL [Suspect]
     Active Substance: RISPERIDONE
     Dosage: VARYING DOSES OF 0.25 MG AND 0.50 MG.
     Route: 048
  4. RISPERDAL [Suspect]
     Active Substance: RISPERIDONE
     Indication: Aggression
     Route: 048
  5. RISPERIDONE [Suspect]
     Active Substance: RISPERIDONE
     Indication: Aggression
     Route: 048
     Dates: start: 2010
  6. RISPERIDONE [Suspect]
     Active Substance: RISPERIDONE
     Indication: Autism spectrum disorder
  7. CLONIDINE [Concomitant]
     Active Substance: CLONIDINE
     Indication: Psychotic disorder
     Route: 065
     Dates: start: 201006, end: 201308
  8. LORAZEPAM [Concomitant]
     Active Substance: LORAZEPAM
     Route: 065
     Dates: start: 201005
  9. FLUVOXAMINE [Concomitant]
     Active Substance: FLUVOXAMINE
     Route: 065
     Dates: start: 201004

REACTIONS (5)
  - Obesity [Unknown]
  - Emotional distress [Unknown]
  - Gynaecomastia [Unknown]
  - Dyskinesia [Unknown]
  - Increased appetite [Unknown]

NARRATIVE: CASE EVENT DATE: 20100801
